FAERS Safety Report 6229981-0 (Version None)
Quarter: 2009Q2

REPORT INFORMATION
  Report Type: 
  Country: None (occurrence: None)
  Receive Date: 20090615
  Receipt Date: 20090529
  Transmission Date: 20091009
  Serious: Yes (Death, Hospitalization)
  Sender: FDA-Public Use
  Company Number: US-AMGEN-US158834

PATIENT
  Sex: Female

DRUGS (9)
  1. ENBREL [Suspect]
     Indication: RHEUMATOID ARTHRITIS
     Route: 058
     Dates: start: 20050127, end: 20050616
  2. PRILOSEC [Concomitant]
  3. CELEXA [Concomitant]
  4. ACTONEL [Concomitant]
  5. FERROUS SULFATE TAB [Concomitant]
  6. METHOTREXATE [Concomitant]
  7. XANAX [Concomitant]
  8. OXYCODONE HYDROCHLORIDE [Concomitant]
  9. MAREZINE [Concomitant]

REACTIONS (2)
  - ACUTE MYOCARDIAL INFARCTION [None]
  - COLITIS ISCHAEMIC [None]
